FAERS Safety Report 7375877-0 (Version None)
Quarter: 2011Q1

REPORT INFORMATION
  Report Type: 
  Country: None (occurrence: None)
  Receive Date: 20110325
  Receipt Date: 20110322
  Transmission Date: 20110831
  Serious: Yes (Death)
  Sender: FDA-Public Use
  Company Number: A0919750A

PATIENT
  Age: 75 Year
  Sex: Male

DRUGS (2)
  1. CORTICOSTEROIDS [Concomitant]
  2. PROMACTA [Suspect]
     Indication: IDIOPATHIC THROMBOCYTOPENIC PURPURA
     Route: 048

REACTIONS (1)
  - DEATH [None]
